FAERS Safety Report 9693129 (Version 1)
Quarter: 2013Q4

REPORT INFORMATION
  Report Type: Spontaneous
  Country: US (occurrence: US)
  Receive Date: 20131118
  Receipt Date: 20131118
  Transmission Date: 20140711
  Serious: Yes (Other)
  Sender: FDA-Public Use
  Company Number: US-BAYER-2013-135597

PATIENT
  Sex: Female

DRUGS (1)
  1. MIRENA [Suspect]
     Dosage: 20 MCG/24HR, CONT
     Route: 015
     Dates: start: 201105, end: 201109

REACTIONS (6)
  - Convulsion [None]
  - Pain in extremity [None]
  - Abdominal pain upper [None]
  - Hypoaesthesia [None]
  - Eyelid disorder [None]
  - Vision blurred [None]
